FAERS Safety Report 7787341-5 (Version None)
Quarter: 2011Q3

REPORT INFORMATION
  Report Type: 
  Country: None (occurrence: None)
  Receive Date: 20110929
  Receipt Date: 20110920
  Transmission Date: 20111222
  Serious: Yes (Hospitalization, Other)
  Sender: FDA-Public Use
  Company Number: US-ELI_LILLY_AND_COMPANY-US201106003905

PATIENT
  Sex: Male
  Weight: 102.95 kg

DRUGS (13)
  1. NOVOLOG [Concomitant]
  2. EFFIENT [Suspect]
     Indication: PERCUTANEOUS CORONARY INTERVENTION
     Dosage: 60 MG, QD
     Route: 048
     Dates: start: 20101124, end: 20101124
  3. FENOFIBRATE [Concomitant]
     Dosage: 160 MG, QD
  4. LOVAZA [Concomitant]
     Dosage: 200 MG, QD
  5. MOTRIN [Concomitant]
     Dosage: 500 MG, PRN
  6. METOPROLOL TARTRATE [Concomitant]
  7. LEVEMIR [Concomitant]
  8. LISINOPRIL [Concomitant]
  9. AMITRIPTYLINE HCL [Concomitant]
  10. ASPIRIN [Concomitant]
     Dosage: 81 MG, QD
  11. GABAPENTIN [Concomitant]
  12. EFFIENT [Suspect]
     Dosage: 10 MG, MAINTENANCE DOSE
     Route: 048
     Dates: start: 20101124, end: 20110609
  13. SIMVASTATIN [Concomitant]

REACTIONS (3)
  - IN-STENT CORONARY ARTERY RESTENOSIS [None]
  - COAGULOPATHY [None]
  - HAEMORRHAGE [None]
